FAERS Safety Report 9969745 (Version 1)
Quarter: 2014Q1

REPORT INFORMATION
  Report Type: Spontaneous
  Country: US (occurrence: None)
  Receive Date: 20140304
  Receipt Date: 20140304
  Transmission Date: 20141002
  Serious: Yes (Other)
  Sender: FDA-Public Use
  Company Number: 2014AP000174

PATIENT
  Age: 61 Year
  Sex: Male

DRUGS (4)
  1. PRAVASTATIN SODIUM [Suspect]
     Indication: HYPERCHOLESTEROLAEMIA
     Route: 048
     Dates: end: 20140102
  2. VALIUM 100266901/ [Concomitant]
  3. CRESTOR [Concomitant]
  4. LYRICA [Concomitant]

REACTIONS (9)
  - Headache [None]
  - Haemorrhage [None]
  - Dizziness [None]
  - Purulence [None]
  - Erectile dysfunction [None]
  - Erectile dysfunction [None]
  - Loss of libido [None]
  - Sinus disorder [None]
  - Inflammation [None]
